FAERS Safety Report 5135426-4 (Version None)
Quarter: 2006Q4

REPORT INFORMATION
  Report Type: 
  Country: None (occurrence: None)
  Receive Date: 20061026
  Receipt Date: 20061004
  Transmission Date: 20070319
  Serious: Yes (Life-Threatening, Hospitalization)
  Sender: FDA-Public Use
  Company Number: JP-JPN-A200604036

PATIENT
  Age: 45 Year
  Sex: Male
  Weight: 67 kg

DRUGS (17)
  1. PAXIL [Suspect]
     Indication: DEPRESSION
     Route: 048
  2. ZOLPIDEM TARTRATE [Concomitant]
     Route: 048
  3. LENDORMIN [Concomitant]
     Indication: INSOMNIA
     Dosage: .5MG PER DAY
     Route: 048
     Dates: start: 20060809, end: 20060813
  4. LIPITOR [Concomitant]
     Dosage: 10MG PER DAY
     Route: 048
     Dates: end: 20060907
  5. DANTROLENE SODIUM [Concomitant]
     Route: 065
  6. LENDORMIN [Concomitant]
     Dosage: .25MG PER DAY
     Route: 048
     Dates: start: 20060814, end: 20060907
  7. LENDORMIN [Concomitant]
     Dosage: .5MG PER DAY
     Route: 048
     Dates: start: 20060908
  8. DOGMATYL [Concomitant]
     Dosage: 200MG PER DAY
     Route: 048
     Dates: end: 20060809
  9. SEPAZON [Concomitant]
     Indication: DEPRESSION
     Dosage: 4MG PER DAY
     Route: 048
     Dates: end: 20060809
  10. FAMOTIDINE [Concomitant]
     Dosage: 20MG PER DAY
     Route: 048
     Dates: end: 20060809
  11. CELESTONE [Concomitant]
     Dosage: 20MG PER DAY
     Route: 048
     Dates: end: 20060809
  12. HIRNAMIN [Concomitant]
     Indication: ANXIETY
     Dosage: 5MG PER DAY
     Route: 048
     Dates: end: 20060809
  13. SILECE [Concomitant]
     Indication: INSOMNIA
     Dosage: 20MG PER DAY
     Route: 048
     Dates: end: 20060809
  14. NAUZELIN [Concomitant]
     Indication: NAUSEA
     Dosage: 10MG PER DAY
     Route: 048
     Dates: start: 20060814, end: 20060907
  15. ROHYPNOL [Concomitant]
     Indication: INSOMNIA
     Dosage: 2MG PER DAY
     Route: 048
     Dates: start: 20060814, end: 20060907
  16. DORAL [Concomitant]
     Indication: INSOMNIA
     Dosage: 15MG PER DAY
     Route: 048
     Dates: start: 20060908
  17. DANTRIUM [Concomitant]
     Indication: INSOMNIA
     Dosage: 50MG PER DAY
     Route: 048
     Dates: start: 20060908, end: 20060911

REACTIONS (5)
  - CHILLS [None]
  - HYPERHIDROSIS [None]
  - MUSCLE RIGIDITY [None]
  - SEROTONIN SYNDROME [None]
  - TREMOR [None]
